FAERS Safety Report 9235064 (Version 8)
Quarter: 2015Q2

REPORT INFORMATION
  Report Type: Spontaneous
  Country: US (occurrence: US)
  Receive Date: 20130416
  Receipt Date: 20150417
  Transmission Date: 20150821
  Serious: Yes (Disabling)
  Sender: FDA-Public Use
  Company Number: US-009507513-1304USA003859

PATIENT
  Sex: Male
  Weight: 71.66 kg

DRUGS (3)
  1. FINASTERIDE. [Suspect]
     Active Substance: FINASTERIDE
     Indication: ANDROGENETIC ALOPECIA
     Dosage: 1 MG, UNK
     Route: 048
  2. PROPECIA [Suspect]
     Active Substance: FINASTERIDE
     Indication: ANDROGENETIC ALOPECIA
     Dosage: 1 MG, UNK
     Route: 048
     Dates: start: 20030905, end: 200604
  3. PROPECIA [Suspect]
     Active Substance: FINASTERIDE
     Dosage: 1 MG, UNK
     Route: 048
     Dates: start: 20101228, end: 2012

REACTIONS (24)
  - Back pain [Not Recovered/Not Resolved]
  - Depression [Unknown]
  - Spermatocele [Unknown]
  - Spermatocele [Unknown]
  - Fatigue [Unknown]
  - Blood urea increased [Unknown]
  - Neck injury [Unknown]
  - Testicular pain [Not Recovered/Not Resolved]
  - Urinary retention [Unknown]
  - Atrophy [Unknown]
  - Back injury [Unknown]
  - Hydrocele [Unknown]
  - Semen volume decreased [Not Recovered/Not Resolved]
  - Testicular injury [Unknown]
  - Skin hypertrophy [Unknown]
  - Blood testosterone decreased [Unknown]
  - Blood creatinine increased [Unknown]
  - Sexual dysfunction [Not Recovered/Not Resolved]
  - Cognitive disorder [Not Recovered/Not Resolved]
  - Nocturia [Unknown]
  - Epididymal cyst [Unknown]
  - Orgasmic sensation decreased [Unknown]
  - Erectile dysfunction [Not Recovered/Not Resolved]
  - Back injury [Unknown]

NARRATIVE: CASE EVENT DATE: 200401
